FAERS Safety Report 7520743-0 (Version None)
Quarter: 2011Q2

REPORT INFORMATION
  Report Type: 
  Country: None (occurrence: None)
  Receive Date: 20110603
  Receipt Date: 20101124
  Transmission Date: 20111010
  Serious: Yes (Hospitalization, Other)
  Sender: FDA-Public Use
  Company Number: US-BAYER-2010-002150

PATIENT
  Age: 24 Year
  Sex: Female
  Weight: 95 kg

DRUGS (4)
  1. EXCEDRIN (MIGRAINE) [Concomitant]
     Indication: MIGRAINE
  2. VITAMIN D [Concomitant]
     Dosage: 2000 IU, QD
  3. YAZ [Suspect]
     Indication: PRODUCT USED FOR UNKNOWN INDICATION
     Dosage: UNK
     Dates: start: 20090301, end: 20090901
  4. VALTREX [Concomitant]
     Dosage: 1 G, QD

REACTIONS (4)
  - GALLBLADDER INJURY [None]
  - CHOLECYSTITIS CHRONIC [None]
  - CHOLELITHIASIS [None]
  - CHOLECYSTECTOMY [None]
